FAERS Safety Report 24891262 (Version 1)
Quarter: 2025Q1

REPORT INFORMATION
  Report Type: Spontaneous
  Country: US (occurrence: US)
  Receive Date: 20250127
  Receipt Date: 20250127
  Transmission Date: 20250408
  Serious: No
  Sender: SANOFI AVENTIS
  Company Number: US-SA-2025SA022766

PATIENT

DRUGS (1)
  1. TAXOTERE [Suspect]
     Active Substance: DOCETAXEL
     Dates: start: 20150212, end: 20150417

REACTIONS (6)
  - Keratitis [Unknown]
  - Ocular hyperaemia [Unknown]
  - Vision blurred [Unknown]
  - Vision blurred [Unknown]
  - Oedema [Unknown]
  - Lacrimation increased [Unknown]
